FAERS Safety Report 7910468-1 (Version None)
Quarter: 2011Q4

REPORT INFORMATION
  Report Type: 
  Country: None (occurrence: None)
  Receive Date: 20111111
  Receipt Date: 20111101
  Transmission Date: 20120403
  Serious: Yes (Other)
  Sender: FDA-Public Use
  Company Number: PHHY2011IL97030

PATIENT
  Sex: Female
  Weight: 52 kg

DRUGS (10)
  1. NORMOPRESAN [Concomitant]
  2. SANDOSTATIN LAR [Suspect]
     Indication: CARCINOID TUMOUR
     Dosage: 20 MG EVERY 28 DAYS
     Dates: start: 20100831
  3. SIMVASTATIN [Concomitant]
     Indication: HYPERCHOLESTEROLAEMIA
  4. EVITOL [Concomitant]
  5. MEMPARA [Concomitant]
     Indication: CARCINOID TUMOUR
  6. VASODIP [Concomitant]
  7. DIOVAN [Suspect]
     Indication: HYPERTENSION
     Route: 048
  8. ACTONEL [Concomitant]
     Indication: OSTEOPOROSIS
  9. ETHANOL [Concomitant]
  10. LEVOTHYROXINE SODIUM [Concomitant]
     Indication: HYPOTHYROIDISM
     Dosage: 50 MGX3

REACTIONS (2)
  - PYELONEPHRITIS [None]
  - NEPHROLITHIASIS [None]
